FAERS Safety Report 4650075-X (Version None)
Quarter: 2005Q2

REPORT INFORMATION
  Report Type: 
  Country: None (occurrence: None)
  Receive Date: 20050428
  Receipt Date: 20050422
  Transmission Date: 20051028
  Serious: Yes (Other)
  Sender: FDA-Public Use
  Company Number: TPG2004A00337

PATIENT
  Age: 68 Year
  Sex: Male

DRUGS (3)
  1. ACTOS [Suspect]
     Indication: DIABETES MELLITUS
     Dosage: 30 MG (30 MG, 1 IN 1 D) PER ORAL
     Route: 048
     Dates: start: 20040714, end: 20041115
  2. MEDYN(TRIOBE) [Concomitant]
  3. IBUPROFEN [Concomitant]

REACTIONS (4)
  - APLASTIC ANAEMIA [None]
  - BONE MARROW TOXICITY [None]
  - DENTAL OPERATION [None]
  - MULTIPLE MYELOMA [None]
